FAERS Safety Report 10152390 (Version 1)
Quarter: 2014Q2

REPORT INFORMATION
  Report Type: Spontaneous
  Country: US (occurrence: US)
  Receive Date: 20140505
  Receipt Date: 20140505
  Transmission Date: 20141212
  Serious: Yes (Other)
  Sender: FDA-Public Use
  Company Number: US-SA-2014SA053852

PATIENT
  Sex: Male

DRUGS (2)
  1. MULTAQ [Suspect]
     Indication: ATRIAL FIBRILLATION
     Route: 065
  2. CIPRO [Interacting]
     Indication: FOOD POISONING
     Route: 065
     Dates: start: 201403, end: 201403

REACTIONS (5)
  - Cardiac procedure complication [Unknown]
  - Therapeutic response decreased [Unknown]
  - Food poisoning [Unknown]
  - Heart rate increased [Recovered/Resolved]
  - Drug interaction [Recovered/Resolved]
